FAERS Safety Report 6475706-3 (Version None)
Quarter: 2009Q4

REPORT INFORMATION
  Report Type: 
  Country: None (occurrence: None)
  Receive Date: 20091204
  Receipt Date: 20091130
  Transmission Date: 20100525
  Serious: Yes (Life-Threatening, Other)
  Sender: FDA-Public Use
  Company Number: FR-ELI_LILLY_AND_COMPANY-FR200910000379

PATIENT
  Age: 41 Year
  Sex: Male
  Weight: 80 kg

DRUGS (2)
  1. ALIMTA [Suspect]
     Indication: LUNG CANCER METASTATIC
     Dosage: 500 MG/M2 (OR 100MG), OTHER DAY ONE OF EVERY 21 DAYS
     Route: 042
     Dates: start: 20090907, end: 20090928
  2. CISPLATIN [Concomitant]
     Indication: LUNG CANCER METASTATIC
     Dosage: 75 MG/M2, UNK
     Route: 042
     Dates: start: 20090907, end: 20090928

REACTIONS (6)
  - CARDIO-RESPIRATORY ARREST [None]
  - DIZZINESS [None]
  - LOSS OF CONSCIOUSNESS [None]
  - NAUSEA [None]
  - SOMNOLENCE [None]
  - TORSADE DE POINTES [None]
